FAERS Safety Report 6293335-1 (Version None)
Quarter: 2009Q3

REPORT INFORMATION
  Report Type: 
  Country: None (occurrence: None)
  Receive Date: 20090731
  Receipt Date: 20090723
  Transmission Date: 20100115
  Serious: Yes (Hospitalization, Other)
  Sender: FDA-Public Use
  Company Number: PHHY2009JP22617

PATIENT
  Age: 42 Year
  Sex: Female

DRUGS (4)
  1. TEGRETOL [Suspect]
     Indication: EPILEPSY
     Dosage: 800 MG DAILY
     Route: 048
     Dates: start: 20090602, end: 20090603
  2. TEGRETOL [Suspect]
     Dosage: 400 MG DAILY
     Route: 048
     Dates: start: 20090603, end: 20090604
  3. TEGRETOL [Suspect]
     Dosage: 600 MG DAILY
     Route: 048
     Dates: start: 20090604, end: 20090610
  4. DEPAKENE [Concomitant]
     Dosage: 800 MG
     Route: 048
     Dates: start: 20090505, end: 20090605

REACTIONS (7)
  - DIZZINESS [None]
  - NAUSEA [None]
  - NERVOUS SYSTEM DISORDER [None]
  - OVERDOSE [None]
  - TINNITUS [None]
  - VISION BLURRED [None]
  - VOMITING [None]
